FAERS Safety Report 5954041-3 (Version None)
Quarter: 2008Q4

REPORT INFORMATION
  Report Type: 
  Country: None (occurrence: None)
  Receive Date: 20081114
  Receipt Date: 20081107
  Transmission Date: 20090506
  Serious: Yes (Other)
  Sender: FDA-Public Use
  Company Number: JP-AMGEN-US317779

PATIENT
  Age: 71 Year
  Sex: Female

DRUGS (4)
  1. ENBREL [Suspect]
     Indication: RHEUMATOID ARTHRITIS
     Dosage: UNKNOWN; STARTED 16 MOS. PRIOR TO RHEUMATREX; DISCONTINUED FOR ONE MONTH AND THEN RESUMED
     Route: 058
  2. ENBREL [Suspect]
     Dosage: UNKNOWN
     Route: 058
  3. PREDNISOLONE [Suspect]
     Indication: RHEUMATOID ARTHRITIS
  4. METHOTREXATE [Suspect]
     Indication: RHEUMATOID ARTHRITIS
     Route: 048

REACTIONS (2)
  - CHOLANGITIS [None]
  - CHOLELITHIASIS [None]
